FAERS Safety Report 23859200 (Version 1)
Quarter: 2024Q2

REPORT INFORMATION
  Report Type: Spontaneous
  Country: US (occurrence: US)
  Receive Date: 20240515
  Receipt Date: 20240515
  Transmission Date: 20240716
  Serious: Yes (Hospitalization)
  Sender: FDA-Public Use
  Company Number: US-BoehringerIngelheim-2024-BI-027335

PATIENT
  Sex: Female

DRUGS (4)
  1. JARDIANCE [Suspect]
     Active Substance: EMPAGLIFLOZIN
     Indication: Chronic kidney disease
  2. ZEPBOUND [Concomitant]
     Active Substance: TIRZEPATIDE
     Indication: Obesity
     Dosage: DOSE: 15
     Dates: start: 20240101
  3. HYDROCHLOROTHIAZIDE\LISINOPRIL [Concomitant]
     Active Substance: HYDROCHLOROTHIAZIDE\LISINOPRIL
     Indication: Hypertension
     Dosage: DOSE: 20-12.5
  4. DULOXETINE [Concomitant]
     Active Substance: DULOXETINE
     Indication: Panic disorder

REACTIONS (4)
  - Heat exhaustion [Recovered/Resolved]
  - Renal function test abnormal [Recovered/Resolved]
  - Hypotension [Recovered/Resolved]
  - Intentional product use issue [Unknown]
